FAERS Safety Report 10740741 (Version 1)
Quarter: 2015Q1

REPORT INFORMATION
  Report Type: Spontaneous
  Country: US (occurrence: None)
  Receive Date: 20150123
  Receipt Date: 20150123
  Transmission Date: 20150721
  Serious: No
  Sender: FDA-Public Use
  Company Number: None

PATIENT
  Age: 12 Year
  Sex: Female

DRUGS (2)
  1. EXJADE [Suspect]
     Active Substance: DEFERASIROX
     Indication: IRON OVERLOAD
     Route: 048
     Dates: start: 20131003
  2. EXJADE [Suspect]
     Active Substance: DEFERASIROX

REACTIONS (2)
  - Abdominal pain upper [None]
  - Constipation [None]

NARRATIVE: CASE EVENT DATE: 201501
